FAERS Safety Report 5025513-3 (Version None)
Quarter: 2006Q2

REPORT INFORMATION
  Report Type: 
  Country: None (occurrence: None)
  Receive Date: 20060607
  Receipt Date: 20060523
  Transmission Date: 20061013
  Serious: Yes (Hospitalization)
  Sender: FDA-Public Use
  Company Number: 2006US001093

PATIENT
  Age: 40 Year
  Sex: Male
  Weight: 44.6 kg

DRUGS (1)
  1. PROGRAF [Suspect]
     Indication: PROPHYLAXIS AGAINST TRANSPLANT REJECTION
     Dosage: 10 MG, ORAL
     Route: 048
     Dates: start: 20050320

REACTIONS (3)
  - BIOPSY KIDNEY ABNORMAL [None]
  - BLOOD CREATININE INCREASED [None]
  - NEPHROPATHY TOXIC [None]
